FAERS Safety Report 7484698-X (Version None)
Quarter: 2011Q2

REPORT INFORMATION
  Report Type: 
  Country: None (occurrence: None)
  Receive Date: 20110517
  Receipt Date: 20101209
  Transmission Date: 20111010
  Serious: Yes (Life-Threatening)
  Sender: FDA-Public Use
  Company Number: US-BAYER-2010-004773

PATIENT
  Sex: Female

DRUGS (1)
  1. YAZ [Suspect]
     Indication: CONTRACEPTION

REACTIONS (5)
  - PAIN [None]
  - GALLBLADDER NON-FUNCTIONING [None]
  - ASTHENIA [None]
  - ANXIETY [None]
  - FATIGUE [None]
